FAERS Safety Report 23909680 (Version 1)
Quarter: 2024Q2

REPORT INFORMATION
  Report Type: Spontaneous
  Country: GB (occurrence: GB)
  Receive Date: 20240528
  Receipt Date: 20240528
  Transmission Date: 20240716
  Serious: Yes (Life-Threatening, Hospitalization)
  Sender: FDA-Public Use
  Company Number: None

PATIENT
  Age: 72 Year
  Sex: Male

DRUGS (7)
  1. CLOPIDOGREL [Suspect]
     Active Substance: CLOPIDOGREL BISULFATE
     Route: 065
  2. ATORVASTATIN [Concomitant]
     Active Substance: ATORVASTATIN
     Dosage: AT NIGHT,
  3. LANSOPRAZOLE [Concomitant]
     Active Substance: LANSOPRAZOLE
     Dosage: EACH MORNING,
  4. WARFARIN [Suspect]
     Active Substance: WARFARIN
     Dosage: TAKE AS PRESCRIBED IN ANTICOAGULANT TREATMENT BOOK 56 TABLET -SWAPPED TO EDOXABAN.
     Route: 065
  5. DOXAZOSIN [Concomitant]
     Active Substance: DOXAZOSIN MESYLATE
  6. INDAPAMIDE [Concomitant]
     Active Substance: INDAPAMIDE
     Dosage: EACH MORNING,
  7. THIAMINE [Concomitant]
     Active Substance: THIAMINE

REACTIONS (3)
  - Lower gastrointestinal haemorrhage [Recovered/Resolved]
  - Lethargy [Unknown]
  - Rectal haemorrhage [Unknown]
